FAERS Safety Report 4591316-7 (Version None)
Quarter: 2005Q1

REPORT INFORMATION
  Report Type: 
  Country: None (occurrence: None)
  Receive Date: 20050223
  Receipt Date: 20050223
  Transmission Date: 20050727
  Serious: Yes (Hospitalization)
  Sender: FDA-Public Use
  Company Number: None

PATIENT
  Age: 48 Year
  Sex: Male
  Weight: 108.8633 kg

DRUGS (2)
  1. NEXIUM [Suspect]
     Indication: EROSIVE OESOPHAGITIS
     Dosage: 40 MG DAILY 1 HR BEFORE MEAL BY MOUTH
     Route: 048
     Dates: start: 20041101, end: 20041213
  2. NEXIUM [Suspect]
     Indication: GASTROOESOPHAGEAL REFLUX DISEASE
     Dosage: 40 MG DAILY 1 HR BEFORE MEAL BY MOUTH
     Route: 048
     Dates: start: 20041101, end: 20041213

REACTIONS (7)
  - AGITATION [None]
  - ANXIETY [None]
  - GASTROINTESTINAL DISORDER [None]
  - PANIC ATTACK [None]
  - PERSONALITY CHANGE [None]
  - SUICIDAL IDEATION [None]
  - URTICARIA [None]
